FAERS Safety Report 7184495-9 (Version None)
Quarter: 2010Q4

REPORT INFORMATION
  Report Type: 
  Country: None (occurrence: None)
  Receive Date: 20101222
  Receipt Date: 20101213
  Transmission Date: 20110411
  Serious: Yes (Death, Hospitalization)
  Sender: FDA-Public Use
  Company Number: US-ACTELION-A-NJ2010-42117

PATIENT

DRUGS (3)
  1. BOSENTAN TABLET UNKNOWN US MG [Suspect]
     Indication: PULMONARY ARTERIAL HYPERTENSION
     Dosage: 125 MG, BID
     Route: 048
     Dates: start: 20080101, end: 20101127
  2. BOSENTAN TABLET UNKNOWN US MG [Suspect]
     Dosage: 62.5 MG, BID
     Route: 048
     Dates: start: 20081031
  3. REVATIO [Concomitant]

REACTIONS (4)
  - CARDIOGENIC SHOCK [None]
  - MIGRAINE [None]
  - OCULAR ICTERUS [None]
  - RIGHT VENTRICULAR FAILURE [None]
